FAERS Safety Report 9607773 (Version 1)
Quarter: 2013Q4

REPORT INFORMATION
  Report Type: Spontaneous
  Country: GB (occurrence: None)
  Receive Date: 20131007
  Receipt Date: 20131007
  Transmission Date: 20140711
  Serious: Yes (Hospitalization, Other)
  Sender: FDA-Public Use
  Company Number: GB-MACLEODS PHARMA-000138

PATIENT
  Sex: Female

DRUGS (5)
  1. DONEPEZIL [Suspect]
     Indication: DEMENTIA
     Route: 048
     Dates: start: 201201, end: 20120820
  2. ASPIRIN (ASPIRIN) [Concomitant]
  3. SIMVASTATIN [Concomitant]
  4. ATENOLOL [Concomitant]
  5. FUROSEMIDE [Concomitant]

REACTIONS (3)
  - Atrioventricular block first degree [None]
  - Sinus bradycardia [None]
  - Fall [None]
